FAERS Safety Report 4747917-6 (Version None)
Quarter: 2005Q3

REPORT INFORMATION
  Report Type: 
  Country: None (occurrence: None)
  Receive Date: 20050818
  Receipt Date: 20050801
  Transmission Date: 20060218
  Serious: Yes (Life-Threatening, Hospitalization, Other)
  Sender: FDA-Public Use
  Company Number: 200517263GDDC

PATIENT
  Sex: Male

DRUGS (1)
  1. ARAVA [Suspect]
     Indication: RHEUMATOID ARTHRITIS
     Dosage: DOSE: UNK
     Dates: end: 20050401

REACTIONS (2)
  - LUNG NEOPLASM [None]
  - PLEURISY [None]
